FAERS Safety Report 7391202-3 (Version None)
Quarter: 2011Q2

REPORT INFORMATION
  Report Type: 
  Country: None (occurrence: None)
  Receive Date: 20110404
  Receipt Date: 20100604
  Transmission Date: 20111010
  Serious: Yes (Other)
  Sender: FDA-Public Use
  Company Number: US-PFIZER INC-2010070929

PATIENT
  Sex: Male
  Weight: 124.26 kg

DRUGS (2)
  1. HYDROCHLOROTHIAZIDE [Concomitant]
     Dosage: UNK
  2. ZOLOFT [Suspect]
     Indication: DEPRESSION
     Dosage: 75 MG, 1X/DAY
     Route: 048
     Dates: start: 20070101

REACTIONS (3)
  - DIZZINESS [None]
  - ANXIETY [None]
  - BLOOD CHOLESTEROL INCREASED [None]
